FAERS Safety Report 6321544-1 (Version None)
Quarter: 2009Q3

REPORT INFORMATION
  Report Type: 
  Country: None (occurrence: None)
  Receive Date: 20090824
  Receipt Date: 20071108
  Transmission Date: 20100115
  Serious: Yes (Other)
  Sender: FDA-Public Use
  Company Number: US-ASTRAZENECA-2007UW12894

PATIENT
  Age: 343 Month
  Sex: Female
  Weight: 146.1 kg

DRUGS (21)
  1. SEROQUEL [Suspect]
     Indication: SLEEP DISORDER
     Route: 048
     Dates: start: 20011001
  2. SEROQUEL [Suspect]
     Indication: BIPOLAR DISORDER
     Route: 048
     Dates: start: 20011001
  3. SEROQUEL [Suspect]
     Route: 048
     Dates: start: 20011015
  4. SEROQUEL [Suspect]
     Route: 048
     Dates: start: 20011015
  5. RISPERDAL [Concomitant]
     Indication: ANXIETY
     Dates: start: 20040913
  6. RISPERDAL [Concomitant]
     Dates: start: 20050101, end: 20050101
  7. ABILIFY [Concomitant]
     Dates: start: 20050101
  8. GEODON [Concomitant]
     Dates: start: 20050101
  9. HALDOL [Concomitant]
     Dates: start: 20000101, end: 20030101
  10. THORAZINE [Concomitant]
     Dates: start: 20000101, end: 20030101
  11. EFFEXOR [Concomitant]
     Dates: start: 20011029
  12. DEPAKOTE [Concomitant]
     Route: 048
     Dates: start: 20011015
  13. CELEXA [Concomitant]
     Indication: DEPRESSIVE SYMPTOM
     Dosage: 20 MG TO 40 MG DAILY
     Route: 048
     Dates: start: 20011015
  14. ZYPREXA [Concomitant]
     Route: 048
     Dates: start: 20011015
  15. ALBUTEROL [Concomitant]
     Indication: DYSPNOEA
     Dosage: 2 PUFFS 4 TIMES A DAY IF NEEDED
     Route: 055
     Dates: start: 20011015
  16. AMBIEN [Concomitant]
     Indication: SLEEP DISORDER
     Dates: start: 20090407
  17. PREVACID [Concomitant]
     Route: 048
     Dates: start: 20011015
  18. MOTRIN [Concomitant]
     Dates: start: 20080223
  19. TRILEPTAL [Concomitant]
     Dates: start: 20090427
  20. COLACE [Concomitant]
     Dates: start: 20090427
  21. NITROGLYCERIN [Concomitant]
     Dates: start: 20040913

REACTIONS (6)
  - DRUG INEFFECTIVE [None]
  - NEOPLASM MALIGNANT [None]
  - OVARIAN CANCER [None]
  - OVARIAN LOW MALIGNANT POTENTIAL TUMOUR [None]
  - PANCREATITIS [None]
  - PANCREATITIS CHRONIC [None]
